FAERS Safety Report 16161966 (Version 1)
Quarter: 2019Q2

REPORT INFORMATION
  Report Type: Spontaneous
  Country: NL (occurrence: NL)
  Receive Date: 20190405
  Receipt Date: 20190405
  Transmission Date: 20190711
  Serious: Yes (Death, Life-Threatening)
  Sender: FDA-Public Use
  Company Number: NL-ACCORD-118036

PATIENT
  Age: 65 Year
  Sex: Male
  Weight: 85 kg

DRUGS (9)
  1. MOVICOLON [Suspect]
     Active Substance: POLYETHYLENE GLYCOL 3350\POTASSIUM CHLORIDE\SODIUM BICARBONATE\SODIUM CHLORIDE
     Indication: PRODUCT USED FOR UNKNOWN INDICATION
     Dosage: 1 DD 25 ML
     Dates: start: 20180606, end: 20180618
  2. DIAZEPAM. [Concomitant]
     Active Substance: DIAZEPAM
     Dosage: (REDUCTION, USED PREVIOUSLY 2 D 2 MG FROM 2013)
     Dates: start: 2013
  3. VIT B COMPLEX FORTE [Concomitant]
     Dosage: 1 D 1 SINCE 2015
     Dates: start: 2015
  4. CLOZAPINE. [Suspect]
     Active Substance: CLOZAPINE
     Indication: DELUSION
     Dosage: 2 D 1 AND 1 D 0.5 TABL TOTAL 250 MG PER DAY. (SLOWLY BUILT UP TO THIS DOSAGE)
     Dates: start: 20161228, end: 20181102
  5. THIAMINE. [Concomitant]
     Active Substance: THIAMINE
     Dosage: 2 D 50 MG SINCE 2013
     Dates: start: 2013
  6. DESMOPRESSIN [Concomitant]
     Active Substance: DESMOPRESSIN
     Dosage: 1 D FROM 2015
     Dates: start: 2015
  7. RESDAN [Concomitant]
     Dosage: 3 X PER WEEK.
  8. ALENDRONATE SODIUM/ALENDRONIC ACID [Concomitant]
     Dosage: 1 X PER WEEK SINCE 3 YEARS; STRENGTH: 70 MG
     Dates: start: 2016
  9. COLECALCIFEROL [Concomitant]
     Active Substance: CHOLECALCIFEROL
     Dosage: 1 X MONTH 25,000 IE. ORALLY

REACTIONS (3)
  - Impaired gastric emptying [Recovered/Resolved with Sequelae]
  - Ileus paralytic [Recovered/Resolved with Sequelae]
  - Vomiting [Recovered/Resolved with Sequelae]

NARRATIVE: CASE EVENT DATE: 20180616
